FAERS Safety Report 17631420 (Version 2)
Quarter: 2020Q2

REPORT INFORMATION
  Report Type: Spontaneous
  Country: US (occurrence: US)
  Receive Date: 20200406
  Receipt Date: 20200504
  Transmission Date: 20200713
  Serious: Yes (Other)
  Sender: FDA-Public Use
  Company Number: US-AMERICAN REGENT INC-2020000819

PATIENT
  Sex: Female

DRUGS (1)
  1. INJECTAFER [Suspect]
     Active Substance: FERRIC CARBOXYMALTOSE
     Indication: BLOOD IRON DECREASED
     Dosage: UNK
     Route: 065
     Dates: start: 20200214, end: 20200214

REACTIONS (2)
  - Coronary artery disease [Unknown]
  - Cerebrovascular accident [Unknown]
